FAERS Safety Report 4297582-X (Version None)
Quarter: 2004Q1

REPORT INFORMATION
  Report Type: 
  Country: None (occurrence: None)
  Receive Date: 20040126
  Receipt Date: 20030916
  Transmission Date: 20041129
  Serious: No
  Sender: FDA-Public Use
  Company Number: USA030947384

PATIENT
  Age: 11 Year
  Sex: Male
  Weight: 48 kg

DRUGS (2)
  1. STRATTERA [Suspect]
     Dosage: 60 MG
     Dates: start: 20030601
  2. DEXTRO AMPHETAMINE SULFATE TAB [Concomitant]

REACTIONS (2)
  - MOOD SWINGS [None]
  - REBOUND EFFECT [None]
